FAERS Safety Report 7826882-9 (Version None)
Quarter: 2011Q4

REPORT INFORMATION
  Report Type: 
  Country: None (occurrence: None)
  Receive Date: 20111020
  Receipt Date: 20111010
  Transmission Date: 20120403
  Serious: Yes (Hospitalization)
  Sender: FDA-Public Use
  Company Number: US-JNJFOC-20111004537

PATIENT
  Sex: Female
  Weight: 65.32 kg

DRUGS (1)
  1. REMICADE [Suspect]
     Indication: RHEUMATOID ARTHRITIS
     Route: 042
     Dates: start: 20110816

REACTIONS (7)
  - ABDOMINAL PAIN UPPER [None]
  - FLATULENCE [None]
  - WEIGHT INCREASED [None]
  - DIARRHOEA [None]
  - NAUSEA [None]
  - PYREXIA [None]
  - PAIN [None]
